FAERS Safety Report 7809540-6 (Version None)
Quarter: 2011Q4

REPORT INFORMATION
  Report Type: 
  Country: None (occurrence: None)
  Receive Date: 20111007
  Receipt Date: 20110921
  Transmission Date: 20120403
  Serious: Yes (Other)
  Sender: FDA-Public Use
  Company Number: TPA2011A04504

PATIENT
  Age: 73 Year
  Sex: Female

DRUGS (11)
  1. PLAVIX [Concomitant]
  2. KAMAG (MAGNESIUM OXIDE) [Concomitant]
  3. ZETIA [Concomitant]
  4. SPIRONOLACTONE [Concomitant]
  5. ARTIST (CARVEDILOL) [Concomitant]
  6. JANUVIA [Concomitant]
  7. NICORANTA (NICORANDIL) [Concomitant]
  8. FEBURIC (FEBUXOSTAT) [Suspect]
     Indication: HYPERURICAEMIA
     Dosage: 10 MG (10 MG,1 IN 1 D) PER ORAL ; 20 MG (20 MG,1 IN 1 D) PER ORAL
     Route: 048
     Dates: start: 20110628, end: 20110714
  9. FEBURIC (FEBUXOSTAT) [Suspect]
     Indication: HYPERURICAEMIA
     Dosage: 10 MG (10 MG,1 IN 1 D) PER ORAL ; 20 MG (20 MG,1 IN 1 D) PER ORAL
     Route: 048
     Dates: start: 20110614, end: 20110627
  10. LASIX [Concomitant]
  11. ASPIRIN [Concomitant]

REACTIONS (1)
  - BLOOD URIC ACID DECREASED [None]
